FAERS Safety Report 17862325 (Version 1)
Quarter: 2020Q2

REPORT INFORMATION
  Report Type: Spontaneous
  Country: US (occurrence: US)
  Receive Date: 20200604
  Receipt Date: 20200604
  Transmission Date: 20200714
  Serious: Yes (Disabling, Other)
  Sender: FDA-Public Use
  Company Number: US-SA-2020SA142194

PATIENT

DRUGS (1)
  1. GOLD BOND ORIGINAL STRENGTH POWDER [Suspect]
     Active Substance: MENTHOL\ZINC OXIDE

REACTIONS (7)
  - Exposure to chemical pollution [Unknown]
  - Anxiety [Unknown]
  - Injury [Unknown]
  - Loss of personal independence in daily activities [Unknown]
  - Deformity [Unknown]
  - Pain [Unknown]
  - Mesothelioma [Unknown]

NARRATIVE: CASE EVENT DATE: 202001
